FAERS Safety Report 24980571 (Version 1)
Quarter: 2025Q1

REPORT INFORMATION
  Report Type: Spontaneous
  Country: US (occurrence: US)
  Receive Date: 20250218
  Receipt Date: 20250218
  Transmission Date: 20250408
  Serious: No
  Sender: MYLAN
  Company Number: US-MYLANLABS-2025M1012111

PATIENT
  Sex: Female

DRUGS (1)
  1. CELEBREX [Suspect]
     Active Substance: CELECOXIB
     Indication: Osteoarthritis
     Dosage: 200 MILLIGRAM, BID (TWO TIMES A DAY)
     Route: 048

REACTIONS (1)
  - Off label use [Unknown]
